FAERS Safety Report 5047661-4 (Version None)
Quarter: 2006Q3

REPORT INFORMATION
  Report Type: 
  Country: None (occurrence: None)
  Receive Date: 20060703
  Receipt Date: 20060630
  Transmission Date: 20061208
  Serious: Yes (Hospitalization, Other)
  Sender: FDA-Public Use
  Company Number: HQWYE690407APR06

PATIENT
  Age: 55 Year
  Sex: Female
  Weight: 81.2 kg

DRUGS (15)
  1. RAPAMUNE [Suspect]
     Indication: PROPHYLAXIS AGAINST TRANSPLANT REJECTION
     Dosage: SEE IMAGE
     Dates: start: 20040330, end: 20060402
  2. RAPAMUNE [Suspect]
     Indication: PROPHYLAXIS AGAINST TRANSPLANT REJECTION
     Dosage: SEE IMAGE
     Dates: start: 20060404
  3. RAPAMUNE [Suspect]
  4. CELLCEPT [Suspect]
     Indication: PROPHYLAXIS AGAINST TRANSPLANT REJECTION
     Dosage: 500 MG 2X PER 1 DAY
     Dates: start: 20030124
  5. PREDNISONE TAB [Concomitant]
  6. AMLODIPINE BESYLATE [Concomitant]
  7. TENORMIN (TENORMIN (ATENOLOL) [Concomitant]
  8. LASIX [Concomitant]
  9. PREVACID [Concomitant]
  10. FOSAMAX [Concomitant]
  11. CALCIUM CARBONATE (CALCIUM CARBONATE) [Concomitant]
  12. POTASSIUM CHLORIDE [Concomitant]
  13. ASPIRIN [Concomitant]
  14. MULTIVITAMINS (ASCORBIC ACID/ERGOCALCIFEROL/FOLIC ACID/NICOTAMIDE/PANT [Concomitant]
  15. LIPITOR [Concomitant]

REACTIONS (11)
  - ASPARTATE AMINOTRANSFERASE INCREASED [None]
  - BLOOD ALKALINE PHOSPHATASE INCREASED [None]
  - CONDITION AGGRAVATED [None]
  - DEHYDRATION [None]
  - DIVERTICULUM [None]
  - DRUG DOSE OMISSION [None]
  - GASTRITIS EROSIVE [None]
  - GASTROENTERITIS [None]
  - HAEMORRHOIDS [None]
  - REFLUX OESOPHAGITIS [None]
  - WHITE BLOOD CELL COUNT DECREASED [None]
